FAERS Safety Report 9735274 (Version 1)
Quarter: 2013Q4

REPORT INFORMATION
  Report Type: Spontaneous
  Country: US (occurrence: US)
  Receive Date: 20131206
  Receipt Date: 20131206
  Transmission Date: 20140711
  Serious: No
  Sender: FDA-Public Use
  Company Number: US-009507513-1312USA001533

PATIENT
  Age: 48 Year
  Sex: Male

DRUGS (5)
  1. VICTRELIS [Suspect]
     Indication: HEPATITIS C
     Dosage: 800 MG, TID
     Route: 048
     Dates: start: 20131201, end: 20131202
  2. PEGASYS [Suspect]
  3. RIBAPAK [Suspect]
  4. AMBIEN [Concomitant]
  5. URSODIOL [Concomitant]

REACTIONS (1)
  - No therapeutic response [Unknown]
